FAERS Safety Report 6047566-6 (Version None)
Quarter: 2009Q1

REPORT INFORMATION
  Report Type: 
  Country: None (occurrence: None)
  Receive Date: 20090123
  Receipt Date: 20090116
  Transmission Date: 20090719
  Serious: Yes (Hospitalization)
  Sender: FDA-Public Use
  Company Number: DE-RANBAXY-2009RR-20470

PATIENT
  Age: 79 Year
  Sex: Female
  Weight: 80 kg

DRUGS (4)
  1. CEFUROXIME [Suspect]
     Indication: TRACHEOSTOMY INFECTION
     Dosage: 4.5 G, UNK
     Route: 042
     Dates: start: 20081221, end: 20081223
  2. CEFUROXIME [Suspect]
     Dosage: 3 G, UNK
     Route: 042
     Dates: start: 20081223, end: 20081224
  3. MERONEM [Suspect]
     Indication: TRACHEOSTOMY INFECTION
     Dosage: 3 G, UNK
     Route: 042
     Dates: start: 20081223, end: 20081224
  4. AMPICILLIN AND SULBACTAM [Suspect]
     Indication: TRACHEOSTOMY INFECTION
     Dosage: 9 G, UNK
     Route: 042
     Dates: start: 20081219, end: 20081221

REACTIONS (2)
  - RASH MACULO-PAPULAR [None]
  - VASCULITIS [None]
